FAERS Safety Report 15941587 (Version 2)
Quarter: 2019Q1

REPORT INFORMATION
  Report Type: Report from Study
  Country: None (occurrence: BR)
  Receive Date: 20190208
  Receipt Date: 20190328
  Transmission Date: 20190417
  Serious: Yes (Other)
  Sender: FDA-Public Use
  Company Number: BR-ABBVIE-19K-020-2651995-00

PATIENT
  Age: 25 Year
  Sex: Female
  Weight: 65 kg

DRUGS (6)
  1. HUMIRA [Suspect]
     Active Substance: ADALIMUMAB
     Indication: ANKYLOSING SPONDYLITIS
     Route: 058
     Dates: start: 2016, end: 20190118
  2. PROLIVE [Concomitant]
     Indication: PROBIOTIC THERAPY
     Dosage: 1 TABLET WHEN EXPERIENCES PAIN
     Route: 048
     Dates: start: 2016
  3. ADOLESS [Concomitant]
     Indication: POLYCYSTIC OVARIES
     Route: 048
     Dates: start: 2017
  4. HUMIRA [Suspect]
     Active Substance: ADALIMUMAB
     Route: 058
     Dates: start: 20190121
  5. LACTASE [Concomitant]
     Active Substance: LACTASE
     Indication: PRODUCT USED FOR UNKNOWN INDICATION
     Route: 048
  6. LACDAY [Concomitant]
     Indication: LACTOSE INTOLERANCE
     Route: 048

REACTIONS (19)
  - Pruritus generalised [Recovered/Resolved]
  - Nausea [Unknown]
  - Injection site haemorrhage [Unknown]
  - Gait disturbance [Unknown]
  - Swelling [Unknown]
  - Pain [Not Recovered/Not Resolved]
  - Mobility decreased [Unknown]
  - Diarrhoea [Unknown]
  - Weight increased [Recovering/Resolving]
  - Abdominal pain [Unknown]
  - Temporomandibular joint syndrome [Unknown]
  - Constipation [Unknown]
  - Presyncope [Unknown]
  - Injection site erythema [Recovered/Resolved]
  - Drug ineffective [Unknown]
  - Wisdom teeth removal [Unknown]
  - Self esteem decreased [Recovering/Resolving]
  - Injection site pain [Recovered/Resolved]
  - Dysmenorrhoea [Unknown]

NARRATIVE: CASE EVENT DATE: 2017
